FAERS Safety Report 18288639 (Version 1)
Quarter: 2020Q3

REPORT INFORMATION
  Report Type: Spontaneous
  Country: US (occurrence: US)
  Receive Date: 20200920
  Receipt Date: 20200920
  Transmission Date: 20201103
  Serious: Yes (Life-Threatening, Hospitalization, Disabling)
  Sender: FDA-Public Use
  Company Number: None

PATIENT
  Age: 41 Year
  Sex: Female
  Weight: 56.25 kg

DRUGS (3)
  1. VAILUM [Concomitant]
  2. CLONAZEPAM. [Suspect]
     Active Substance: CLONAZEPAM
     Indication: ANXIETY DISORDER
     Route: 048
  3. DIAZEPAM. [Suspect]
     Active Substance: DIAZEPAM

REACTIONS (7)
  - Product prescribing error [None]
  - Mental disorder [None]
  - Drug withdrawal syndrome [None]
  - Akathisia [None]
  - Dose calculation error [None]
  - Suicide attempt [None]
  - Anxiety [None]

NARRATIVE: CASE EVENT DATE: 20200115
